FAERS Safety Report 5482106-1 (Version None)
Quarter: 2007Q4

REPORT INFORMATION
  Report Type: 
  Country: None (occurrence: None)
  Receive Date: 20071011
  Receipt Date: 20071002
  Transmission Date: 20080405
  Serious: Yes (Other)
  Sender: FDA-Public Use
  Company Number: PHNU2007DE03321

PATIENT
  Age: 54 Year
  Sex: Female

DRUGS (2)
  1. TEGRETOL [Suspect]
     Indication: EPILEPSY
     Dosage: 600 MG/DAY
     Route: 048
     Dates: start: 19990101
  2. TEGRETOL [Suspect]
     Dosage: GRADUALLY DECREASED DOSAGE
     Route: 048
     Dates: start: 20060101, end: 20070701

REACTIONS (4)
  - ALTERED STATE OF CONSCIOUSNESS [None]
  - APATHY [None]
  - DIZZINESS [None]
  - SOMNOLENCE [None]
